FAERS Safety Report 9707087 (Version 1)
Quarter: 2013Q4

REPORT INFORMATION
  Report Type: Spontaneous
  Country: KR (occurrence: KR)
  Receive Date: 20131125
  Receipt Date: 20131125
  Transmission Date: 20140711
  Serious: Yes (Other)
  Sender: FDA-Public Use
  Company Number: KR-JNJFOC-20131111313

PATIENT
  Sex: 0

DRUGS (2)
  1. 2-CHLORODEOXYADENOSINE [Suspect]
     Indication: LANGERHANS^ CELL HISTIOCYTOSIS
     Dosage: FOR 5 DAYS
     Route: 065
  2. ARA-C [Suspect]
     Indication: LANGERHANS^ CELL HISTIOCYTOSIS
     Dosage: FOR 3 CAYS
     Route: 065

REACTIONS (2)
  - Bronchopulmonary aspergillosis [Unknown]
  - Off label use [Unknown]
